FAERS Safety Report 25173636 (Version 2)
Quarter: 2025Q2

REPORT INFORMATION
  Report Type: Report from Study
  Country: US (occurrence: US)
  Receive Date: 20250408
  Receipt Date: 20250416
  Transmission Date: 20250716
  Serious: Yes (Hospitalization, Other)
  Sender: Pyros Pharmaceuticals
  Company Number: US-PYROS PHARMACEUTICALS, INC-2025-PYROSUS000049

PATIENT
  Age: 0 Year
  Sex: Male

DRUGS (9)
  1. VIGAFYDE [Suspect]
     Active Substance: VIGABATRIN
     Indication: Infantile spasms
     Dates: start: 20250127, end: 20250201
  2. VIGAFYDE [Suspect]
     Active Substance: VIGABATRIN
     Indication: Seizure
     Dates: start: 20250202, end: 20250204
  3. VIGAFYDE [Suspect]
     Active Substance: VIGABATRIN
     Dates: start: 20250205
  4. PREDNISONE [Concomitant]
     Active Substance: PREDNISONE
     Indication: Product used for unknown indication
     Dates: start: 20250114
  5. VITAMIN D [Concomitant]
     Active Substance: VITAMIN D NOS
     Indication: Product used for unknown indication
     Dates: start: 20250205
  6. PEPCID [Concomitant]
     Active Substance: FAMOTIDINE
     Indication: Abdominal discomfort
     Dates: start: 20250114
  7. Gas Ban [Concomitant]
     Indication: Flatulence
  8. TYLENOL [Concomitant]
     Active Substance: ACETAMINOPHEN
     Indication: Pyrexia
  9. Lotion plus [Concomitant]
     Indication: Eczema
     Route: 061

REACTIONS (10)
  - Depressed level of consciousness [Recovered/Resolved]
  - Heart rate decreased [Recovered/Resolved]
  - Respiratory tract congestion [Recovered/Resolved]
  - Seizure [Recovering/Resolving]
  - Drug ineffective [Unknown]
  - Vomiting [Recovered/Resolved]
  - Asthenia [Not Recovered/Not Resolved]
  - Fatigue [Not Recovered/Not Resolved]
  - Influenza [Recovered/Resolved]
  - Middle insomnia [Not Recovered/Not Resolved]

NARRATIVE: CASE EVENT DATE: 20250101
